FAERS Safety Report 15351533 (Version 4)
Quarter: 2022Q2

REPORT INFORMATION
  Report Type: Report from Study
  Country: DE (occurrence: DE)
  Receive Date: 20180905
  Receipt Date: 20211112
  Transmission Date: 20220721
  Serious: Yes (Hospitalization)
  Sender: FDA-Public Use
  Company Number: DE-002147023-PHHY2018DE082661

PATIENT

DRUGS (5)
  1. RUXOLITINIB [Suspect]
     Active Substance: RUXOLITINIB
     Indication: Myelofibrosis
     Dosage: 15 MG PER DAY
     Route: 048
     Dates: start: 20160816, end: 20161127
  2. RUXOLITINIB [Suspect]
     Active Substance: RUXOLITINIB
     Dosage: 15 MG PER DAY
     Route: 048
     Dates: start: 20161018, end: 20170220
  3. RUXOLITINIB [Suspect]
     Active Substance: RUXOLITINIB
     Dosage: 15 MG PER DAY
     Route: 048
     Dates: start: 20170220
  4. LEVOTHYROXINE [Concomitant]
     Active Substance: LEVOTHYROXINE
     Indication: Hypothyroidism
     Dosage: 100 OT, QD
     Route: 065
     Dates: start: 2007
  5. AGGRENOX [Concomitant]
     Active Substance: ASPIRIN\DIPYRIDAMOLE
     Indication: Cerebrovascular accident
     Dosage: 100 OT, QD
     Route: 065
     Dates: start: 20140513

REACTIONS (9)
  - Intervertebral disc protrusion [Unknown]
  - Nervous system disorder [Unknown]
  - Lordosis [Unknown]
  - Pain [Unknown]
  - Spinal stenosis [Unknown]
  - Abdominal pain upper [Recovered/Resolved]
  - Abdominal pain upper [Unknown]
  - Intervertebral disc degeneration [Recovered/Resolved]
  - Resorption bone increased [Unknown]

NARRATIVE: CASE EVENT DATE: 20161013
